FAERS Safety Report 25458931 (Version 1)
Quarter: 2025Q2

REPORT INFORMATION
  Report Type: Spontaneous
  Country: FR (occurrence: FR)
  Receive Date: 20250620
  Receipt Date: 20250620
  Transmission Date: 20250716
  Serious: Yes (Life-Threatening, Hospitalization)
  Sender: BIOVITRUM
  Company Number: None

PATIENT
  Age: 58 Year
  Sex: Male
  Weight: 60.1 kg

DRUGS (6)
  1. ANAKINRA [Suspect]
     Active Substance: ANAKINRA
     Indication: Familial mediterranean fever
     Route: 042
     Dates: end: 20250611
  2. CEFOTAXIME [Suspect]
     Active Substance: CEFOTAXIME SODIUM
     Indication: Clostridium difficile colitis
     Route: 042
     Dates: start: 20250522, end: 20250611
  3. METRONIDAZOLE [Suspect]
     Active Substance: METRONIDAZOLE
     Indication: Clostridium difficile colitis
     Route: 048
     Dates: start: 20250522, end: 20250611
  4. FLUCONAZOLE [Suspect]
     Active Substance: FLUCONAZOLE
     Indication: Clostridium difficile colitis
     Route: 048
     Dates: start: 20250520, end: 20250611
  5. PANTOPRAZOLE [Suspect]
     Active Substance: PANTOPRAZOLE
     Indication: Gastritis
     Route: 048
     Dates: start: 20250527, end: 20250611
  6. VALACYCLOVIR HYDROCHLORIDE [Suspect]
     Active Substance: VALACYCLOVIR HYDROCHLORIDE
     Indication: Familial mediterranean fever
     Route: 048
     Dates: start: 20250602

REACTIONS (2)
  - Agranulocytosis [Recovered/Resolved]
  - Neutrophil count decreased [Recovered/Resolved]

NARRATIVE: CASE EVENT DATE: 20250603
